FAERS Safety Report 8204780-9 (Version None)
Quarter: 2012Q1

REPORT INFORMATION
  Report Type: 
  Country: None (occurrence: None)
  Receive Date: 20120313
  Receipt Date: 20120302
  Transmission Date: 20120608
  Serious: Yes (Hospitalization, Other)
  Sender: FDA-Public Use
  Company Number: US-JNJFOC-20120302652

PATIENT
  Sex: Female
  Weight: 63.5 kg

DRUGS (2)
  1. OXAPROZIN [Concomitant]
     Indication: INFLAMMATION
     Route: 048
  2. REMICADE [Suspect]
     Indication: RHEUMATOID ARTHRITIS
     Dosage: EVERY 6-8 WEEKS
     Route: 042

REACTIONS (7)
  - HAEMATOMA [None]
  - LOWER LIMB FRACTURE [None]
  - FALL [None]
  - ABNORMAL LOSS OF WEIGHT [None]
  - DEHYDRATION [None]
  - GASTROINTESTINAL OBSTRUCTION [None]
  - BLOOD POTASSIUM DECREASED [None]
